FAERS Safety Report 9128658 (Version 1)
Quarter: 2013Q1

REPORT INFORMATION
  Report Type: Spontaneous
  Country: BR (occurrence: BR)
  Receive Date: 20130125
  Receipt Date: 20130125
  Transmission Date: 20140127
  Serious: Yes (Other)
  Sender: FDA-Public Use
  Company Number: PHHY2012BR060356

PATIENT
  Age: 55 Year
  Sex: Female

DRUGS (6)
  1. GALVUS MET [Suspect]
     Indication: DIABETES MELLITUS
     Dosage: 2 DF (500/50MG), A DAY
     Route: 048
     Dates: start: 2010
  2. SANDOSTATIN LAR [Suspect]
     Indication: GASTROINTESTINAL CARCINOMA
     Dosage: 30 MG, QMO
     Route: 058
  3. SANDOSTATIN LAR [Suspect]
     Indication: MILIARIA
  4. MICARDIS HCT [Concomitant]
     Dosage: 1 DF (12.5/80MG), A DAY
     Route: 048
     Dates: start: 2004
  5. SIMVASTATIN [Concomitant]
     Dosage: 20 MG, DAILY
     Route: 048
     Dates: start: 2012
  6. AMLODIPINE BESYLATE [Concomitant]
     Indication: CARDIAC DISORDER
     Dosage: 5 MG, DAILY
     Route: 048

REACTIONS (5)
  - Metastases to liver [Not Recovered/Not Resolved]
  - Urinary tract infection [Unknown]
  - Mood altered [Not Recovered/Not Resolved]
  - Crying [Unknown]
  - Anger [Unknown]
